FAERS Safety Report 24831932 (Version 1)
Quarter: 2025Q1

REPORT INFORMATION
  Report Type: Spontaneous
  Country: US (occurrence: US)
  Receive Date: 20250110
  Receipt Date: 20250110
  Transmission Date: 20250409
  Serious: Yes (Other)
  Sender: PFIZER
  Company Number: US-PFIZER INC-03H-163-0217464-00

PATIENT
  Age: 75 Year
  Sex: Male

DRUGS (18)
  1. DOPAMINE HYDROCHLORIDE [Interacting]
     Active Substance: DOPAMINE HYDROCHLORIDE
     Indication: Hypotension
     Route: 042
     Dates: start: 20000901, end: 20000901
  2. DOPAMINE HYDROCHLORIDE [Interacting]
     Active Substance: DOPAMINE HYDROCHLORIDE
     Indication: Urine output decreased
     Route: 042
     Dates: start: 20000901, end: 20000901
  3. DOPAMINE HYDROCHLORIDE [Interacting]
     Active Substance: DOPAMINE HYDROCHLORIDE
     Route: 042
     Dates: start: 20000902, end: 20000902
  4. SELEGILINE [Interacting]
     Active Substance: SELEGILINE
     Indication: Parkinson^s disease
     Dosage: 5 MG, 2X/DAY (ALSO REPORTED AS 10 MG, FREQ:3 DAYS)
     Route: 048
     Dates: end: 20000831
  5. CEFAZOLIN [Concomitant]
     Active Substance: CEFAZOLIN
     Route: 042
     Dates: start: 20000901
  6. CEFAZOLIN [Concomitant]
     Active Substance: CEFAZOLIN
     Dosage: 1 G, 3X/DAY (EVERY EIGHT HOURS)
     Route: 042
  7. INSULIN NOS [Concomitant]
     Active Substance: INSULIN NOS
  8. DEXTROSE;POTASSIUM CHLORIDE;SODIUM CHLORIDE [Concomitant]
     Route: 042
     Dates: start: 20000901
  9. ASPIRIN [Concomitant]
     Active Substance: ASPIRIN
     Dosage: UNK DOSE, DAILY
     Route: 048
  10. ALLOPURINOL [Concomitant]
     Active Substance: ALLOPURINOL
     Indication: Gout
     Dosage: 300 MG, DAILY
     Route: 048
  11. INSULIN HUMAN [Concomitant]
     Active Substance: INSULIN HUMAN
     Indication: Diabetes mellitus
     Dosage: 35 UNITS EVERY MORNING
     Route: 058
  12. MOEXIPRIL [Concomitant]
     Active Substance: MOEXIPRIL
     Indication: Hypertension
     Route: 048
  13. MOEXIPRIL [Concomitant]
     Active Substance: MOEXIPRIL
     Dosage: 7.5 MG, DAILY
  14. CARBIDOPA\LEVODOPA [Concomitant]
     Active Substance: CARBIDOPA\LEVODOPA
     Indication: Parkinson^s disease
     Dosage: 100/25, 3X/DAY
  15. METHYLPREDNISOLONE SODIUM SUCCINATE [Concomitant]
     Active Substance: METHYLPREDNISOLONE SODIUM SUCCINATE
     Route: 040
  16. METHYLPREDNISOLONE SODIUM SUCCINATE [Concomitant]
     Active Substance: METHYLPREDNISOLONE SODIUM SUCCINATE
     Route: 042
  17. FAMOTIDINE [Concomitant]
     Active Substance: FAMOTIDINE
     Dosage: 20 MG, 2X/DAY (EVERY 12 HOURS)
     Route: 042
  18. MORPHINE SULFATE [Concomitant]
     Active Substance: MORPHINE SULFATE
     Route: 042

REACTIONS (2)
  - Potentiating drug interaction [Recovered/Resolved]
  - Hypertensive crisis [Recovered/Resolved]

NARRATIVE: CASE EVENT DATE: 20000901
